FAERS Safety Report 8178516-4 (Version None)
Quarter: 2012Q1

REPORT INFORMATION
  Report Type: 
  Country: None (occurrence: None)
  Receive Date: 20120301
  Receipt Date: 20120222
  Transmission Date: 20120608
  Serious: Yes (Hospitalization)
  Sender: FDA-Public Use
  Company Number: PHHY2012IT015142

PATIENT
  Sex: Male

DRUGS (1)
  1. OXALIPLATIN [Suspect]
     Indication: GASTRIC CANCER
     Dosage: 71.91 MG/250 ML
     Dates: start: 20120217, end: 20120217

REACTIONS (6)
  - BLOOD PRESSURE INCREASED [None]
  - HYPERHIDROSIS [None]
  - ANURIA [None]
  - SINUS TACHYCARDIA [None]
  - BRONCHOSPASM [None]
  - DYSPNOEA [None]
